FAERS Safety Report 24062781 (Version 3)
Quarter: 2024Q3

REPORT INFORMATION
  Report Type: Report from Study
  Country: US (occurrence: US)
  Receive Date: 20240709
  Receipt Date: 20240830
  Transmission Date: 20241017
  Serious: Yes (Hospitalization)
  Sender: ACADIA PHARMACEUTICALS
  Company Number: US-ACADIA PHARMACEUTICALS INC.-ACA-2024-PIM-002804

PATIENT
  Age: 73 Year
  Sex: Male

DRUGS (5)
  1. NUPLAZID [Suspect]
     Active Substance: PIMAVANSERIN TARTRATE
     Indication: Parkinson^s disease psychosis
     Dosage: 10 MILLIGRAM, QD
     Route: 048
  2. NUPLAZID [Suspect]
     Active Substance: PIMAVANSERIN TARTRATE
     Indication: Parkinson^s disease
     Dosage: 34 MILLIGRAM, QD
     Route: 048
     Dates: start: 20240608, end: 20240609
  3. NUPLAZID [Suspect]
     Active Substance: PIMAVANSERIN TARTRATE
     Indication: Hallucination
  4. NUPLAZID [Suspect]
     Active Substance: PIMAVANSERIN TARTRATE
     Indication: Delusion
  5. NUPLAZID [Suspect]
     Active Substance: PIMAVANSERIN TARTRATE
     Indication: Parkinson^s disease psychosis

REACTIONS (23)
  - Movement disorder [Recovered/Resolved]
  - Muscular weakness [Not Recovered/Not Resolved]
  - Disorientation [Not Recovered/Not Resolved]
  - Fatigue [Not Recovered/Not Resolved]
  - Pain [Recovered/Resolved]
  - Communication disorder [Not Recovered/Not Resolved]
  - Dizziness [Recovered/Resolved]
  - Balance disorder [Unknown]
  - Abnormal behaviour [Unknown]
  - Soliloquy [Unknown]
  - Fatigue [Unknown]
  - Asthenia [Unknown]
  - Sleep disorder [Unknown]
  - Delusion [Unknown]
  - Condition aggravated [Unknown]
  - Disorientation [Unknown]
  - Hypophagia [Unknown]
  - Logorrhoea [Unknown]
  - Hallucination, visual [Unknown]
  - Hallucination [Not Recovered/Not Resolved]
  - Confusional state [Recovered/Resolved]
  - Fall [Not Recovered/Not Resolved]
  - Confusional state [Not Recovered/Not Resolved]

NARRATIVE: CASE EVENT DATE: 20240608
